FAERS Safety Report 17577405 (Version 1)
Quarter: 2020Q1

REPORT INFORMATION
  Report Type: Spontaneous
  Country: US (occurrence: US)
  Receive Date: 20200324
  Receipt Date: 20200324
  Transmission Date: 20200409
  Serious: No
  Sender: FDA-Public Use
  Company Number: US-IPSEN BIOPHARMACEUTICALS, INC.-2020-05859

PATIENT
  Age: 79 Year
  Sex: Female

DRUGS (14)
  1. HYDROCO/APAP [Concomitant]
     Active Substance: ACETAMINOPHEN\HYDROCODONE
  2. AMLODIPINE [Concomitant]
     Active Substance: AMLODIPINE BESYLATE
  3. METFORMIN [Concomitant]
     Active Substance: METFORMIN HYDROCHLORIDE
  4. GLIMEPIRIDE. [Concomitant]
     Active Substance: GLIMEPIRIDE
  5. SOMATULINE DEPOT [Suspect]
     Active Substance: LANREOTIDE ACETATE
     Indication: ACROMEGALY
     Dosage: NOT REPORTED
     Route: 058
     Dates: start: 20190314
  6. AMOXICILLIN. [Concomitant]
     Active Substance: AMOXICILLIN
  7. LISINOPRIL. [Concomitant]
     Active Substance: LISINOPRIL
  8. MEMANTINE. [Concomitant]
     Active Substance: MEMANTINE
  9. OXYBUTYNIN. [Concomitant]
     Active Substance: OXYBUTYNIN CHLORIDE
  10. RISEDRONATE [Concomitant]
     Active Substance: RISEDRONATE SODIUM
  11. SIMVASTATIN. [Concomitant]
     Active Substance: SIMVASTATIN
  12. LEVEMIR [Concomitant]
     Active Substance: INSULIN DETEMIR
  13. VICTOZA [Concomitant]
     Active Substance: LIRAGLUTIDE
  14. NIACIN. [Concomitant]
     Active Substance: NIACIN

REACTIONS (3)
  - Dizziness [Unknown]
  - Fall [Unknown]
  - Pain in extremity [Unknown]

NARRATIVE: CASE EVENT DATE: 20200302
